FAERS Safety Report 5673023-2 (Version None)
Quarter: 2008Q1

REPORT INFORMATION
  Report Type: 
  Country: None (occurrence: None)
  Receive Date: 20080319
  Receipt Date: 20080125
  Transmission Date: 20080703
  Serious: No
  Sender: FDA-Public Use
  Company Number: US-ASTRAZENECA-2008UW01824

PATIENT
  Age: 55 Year
  Sex: Female
  Weight: 62.1 kg

DRUGS (8)
  1. SYMBICORT [Suspect]
     Indication: ASTHMA
     Dosage: 160/4.5 UG 2 PUFFS ONCE DAILY
     Route: 055
     Dates: start: 20071201
  2. XOPENEX [Concomitant]
  3. ALBUTEROL [Concomitant]
     Route: 055
  4. FLOVENT [Concomitant]
  5. AMBIEN [Concomitant]
  6. GINGER [Concomitant]
  7. ASCORBIC ACID [Concomitant]
  8. GINKGO [Concomitant]

REACTIONS (3)
  - BRONCHOSPASM [None]
  - EAR DISORDER [None]
  - RESPIRATORY TRACT IRRITATION [None]
